FAERS Safety Report 9861779 (Version 1)
Quarter: 2014Q1

REPORT INFORMATION
  Report Type: Spontaneous
  Country: IT (occurrence: IT)
  Receive Date: 20140203
  Receipt Date: 20140203
  Transmission Date: 20141002
  Serious: Yes (Other)
  Sender: FDA-Public Use
  Company Number: IT-ACCORD-021650

PATIENT
  Age: 34 Year
  Sex: Male

DRUGS (3)
  1. CARBAMAZEPINE [Concomitant]
     Indication: EPILEPSY
  2. TOPIRAMATE [Suspect]
     Indication: PARTIAL SEIZURES
     Dosage: STARTING FROM 50 MG DAILY AND WITH A SLOW INCREASE (50 MG/WK) TO REACH 200 MG DAILY (TAKEN FOR ONE W
  3. LEVETIRACETAM [Concomitant]
     Indication: EPILEPSY

REACTIONS (8)
  - Insomnia [Recovered/Resolved]
  - Hallucination [Recovered/Resolved]
  - Psychotic disorder [Recovered/Resolved]
  - Anxiety [Recovered/Resolved]
  - Aggression [Recovered/Resolved]
  - Derealisation [Recovered/Resolved]
  - Depersonalisation [Recovered/Resolved]
  - Psychomotor hyperactivity [Recovered/Resolved]
